FAERS Safety Report 4522651-6 (Version None)
Quarter: 2004Q4

REPORT INFORMATION
  Report Type: 
  Country: None (occurrence: None)
  Receive Date: 20041207
  Receipt Date: 20041125
  Transmission Date: 20050328
  Serious: No
  Sender: FDA-Public Use
  Company Number: 2004PK02024

PATIENT
  Age: 52 Year
  Sex: Male
  Weight: 75 kg

DRUGS (2)
  1. SEROQUEL [Suspect]
     Indication: SCHIZOPHRENIA, PARANOID TYPE
     Dosage: 900 MG DAILY PO
     Route: 048
     Dates: start: 20040401, end: 20040701
  2. HALDOL [Concomitant]

REACTIONS (3)
  - ABDOMINAL SYMPTOM [None]
  - AGRANULOCYTOSIS [None]
  - LEUKOPENIA [None]
